FAERS Safety Report 18628132 (Version 1)
Quarter: 2020Q4

REPORT INFORMATION
  Report Type: Spontaneous
  Country: US (occurrence: US)
  Receive Date: 20201217
  Receipt Date: 20201217
  Transmission Date: 20210114
  Serious: No
  Sender: FDA-Public Use
  Company Number: None

PATIENT
  Sex: Male
  Weight: 35.8 kg

DRUGS (6)
  1. CYCLOPHOSPHAMIDE 2340MG [Suspect]
     Active Substance: CYCLOPHOSPHAMIDE
     Dates: end: 20201130
  2. MERCAPTOPURINE 2000 MG [Suspect]
     Active Substance: MERCAPTOPURINE
  3. ONCASPAR [Suspect]
     Active Substance: PEGASPARGASE
     Dates: end: 20201214
  4. CYTARABINE 1408 MG [Suspect]
     Active Substance: CYTARABINE
     Dates: end: 20201210
  5. METHOTREXATE?60 MG [Suspect]
     Active Substance: METHOTREXATE
     Dates: end: 20201116
  6. VINCRISTINE SULFATE 3.6MG [Suspect]
     Active Substance: VINCRISTINE SULFATE
     Dates: end: 20201116

REACTIONS (5)
  - Angioedema [None]
  - Flushing [None]
  - Urticaria [None]
  - Abdominal pain [None]
  - Infusion related reaction [None]

NARRATIVE: CASE EVENT DATE: 20201214
